FAERS Safety Report 6670856-0 (Version None)
Quarter: 2010Q2

REPORT INFORMATION
  Report Type: 
  Country: None (occurrence: None)
  Receive Date: 20100407
  Receipt Date: 20100325
  Transmission Date: 20101027
  Serious: Yes (Other)
  Sender: FDA-Public Use
  Company Number: US-BAYER-201017734NA

PATIENT

DRUGS (1)
  1. REFLUDAN [Suspect]
     Indication: DRUG USE FOR UNKNOWN INDICATION
     Dosage: LOW DOSE
     Route: 042
     Dates: start: 20100316, end: 20100322

REACTIONS (1)
  - HAEMORRHAGE [None]
